FAERS Safety Report 9285900 (Version 1)
Quarter: 2013Q2

REPORT INFORMATION
  Report Type: Spontaneous
  Country: DE (occurrence: None)
  Receive Date: 20130506
  Receipt Date: 20130506
  Transmission Date: 20140414
  Serious: Yes (Hospitalization)
  Sender: FDA-Public Use
  Company Number: GER/GER/13/0029367

PATIENT
  Age: 63 Year
  Sex: Male

DRUGS (9)
  1. OLANZAPINE [Suspect]
     Indication: PRODUCT USED FOR UNKNOWN INDICATION
     Route: 048
     Dates: start: 20121126, end: 20121127
  2. PANTOPRAZOLE [Suspect]
     Indication: PRODUCT USED FOR UNKNOWN INDICATION
     Route: 048
     Dates: end: 20121203
  3. VALSARTAN [Suspect]
     Indication: PRODUCT USED FOR UNKNOWN INDICATION
     Route: 048
     Dates: end: 20121203
  4. BISOPROLOL(BISOPROLOL) [Concomitant]
  5. DIAZEPAM(DIAZEPAM) (DIAZEPAM) [Concomitant]
  6. ASS(ACETYLSALICYLIC ACID) [Concomitant]
  7. EPIVIR(LAMIVUDINE) [Concomitant]
  8. RITONAVIR(RITONAVIR) [Concomitant]
  9. PREZISTA(DARUNAVIR ETHANOLATE) [Concomitant]

REACTIONS (1)
  - Hyponatraemia [None]
